FAERS Safety Report 7013617-5 (Version None)
Quarter: 2010Q3

REPORT INFORMATION
  Report Type: 
  Country: None (occurrence: None)
  Receive Date: 20100924
  Receipt Date: 20100916
  Transmission Date: 20110219
  Serious: Yes (Hospitalization)
  Sender: FDA-Public Use
  Company Number: US-ABBOTT-10P-163-0671503-00

PATIENT
  Age: 20 Year
  Sex: Female

DRUGS (1)
  1. DEPAKOTE ER [Suspect]
     Indication: PSYCHOTIC DISORDER
     Dosage: SAMPLES FROM MD OFFICE RECEIVED.  UNKNOWN DOSE PER RN.

REACTIONS (3)
  - ACTIVITIES OF DAILY LIVING IMPAIRED [None]
  - ASTHENIA [None]
  - PLATELET COUNT DECREASED [None]
